FAERS Safety Report 17747545 (Version 4)
Quarter: 2020Q2

REPORT INFORMATION
  Report Type: Spontaneous
  Country: US (occurrence: US)
  Receive Date: 20200505
  Receipt Date: 20200611
  Transmission Date: 20200714
  Serious: Yes (Other)
  Sender: FDA-Public Use
  Company Number: US-PFIZER INC-2020164000

PATIENT
  Age: 63 Year
  Sex: Female
  Weight: 42.18 kg

DRUGS (2)
  1. PREPARATION H RAPID RELIEF [Suspect]
     Active Substance: GLYCERIN\LIDOCAINE
     Indication: HAEMORRHOIDS
     Dosage: UNK
  2. PREPARATION H RAPID RELIEF [Suspect]
     Active Substance: GLYCERIN\LIDOCAINE
     Indication: IRRITABLE BOWEL SYNDROME

REACTIONS (8)
  - Anogenital warts [Unknown]
  - Urticaria [Unknown]
  - Burning sensation [Not Recovered/Not Resolved]
  - Blister [Recovered/Resolved]
  - Drug ineffective [Unknown]
  - Intentional product misuse [Unknown]
  - Pain [Unknown]
  - Skin irritation [Unknown]

NARRATIVE: CASE EVENT DATE: 202001
